FAERS Safety Report 20974752 (Version 2)
Quarter: 2022Q3

REPORT INFORMATION
  Report Type: Report from Study
  Country: GB (occurrence: GB)
  Receive Date: 20220617
  Receipt Date: 20220713
  Transmission Date: 20221027
  Serious: Yes (Other)
  Sender: FDA-Public Use
  Company Number: GB-SAMSUNG BIOEPIS-SB-2022-14741

PATIENT
  Age: 51 Year
  Sex: Female

DRUGS (3)
  1. IMRALDI [Suspect]
     Active Substance: ADALIMUMAB
     Indication: Hidradenitis
     Dosage: WEEK ZERO
     Route: 058
     Dates: start: 20220613
  2. IMRALDI [Suspect]
     Active Substance: ADALIMUMAB
     Dosage: WEEK TWO
     Route: 058
  3. IMRALDI [Suspect]
     Active Substance: ADALIMUMAB
     Route: 058

REACTIONS (15)
  - Taste disorder [Recovering/Resolving]
  - Cough [Recovering/Resolving]
  - Anaphylactic reaction [Unknown]
  - Chest pain [Unknown]
  - Back pain [Unknown]
  - Vomiting [Unknown]
  - Nausea [Unknown]
  - Dizziness [Unknown]
  - Pruritus [Unknown]
  - Malaise [Not Recovered/Not Resolved]
  - Pallor [Unknown]
  - Nervousness [Unknown]
  - Heart rate irregular [Unknown]
  - Feeling hot [Unknown]
  - Flushing [Unknown]

NARRATIVE: CASE EVENT DATE: 20220613
